FAERS Safety Report 20375382 (Version 1)
Quarter: 2022Q1

REPORT INFORMATION
  Report Type: Spontaneous
  Country: FR (occurrence: FR)
  Receive Date: 20220125
  Receipt Date: 20220125
  Transmission Date: 20220423
  Serious: Yes (Life-Threatening, Hospitalization)
  Sender: FDA-Public Use
  Company Number: None

PATIENT
  Age: 78 Year
  Sex: Male

DRUGS (3)
  1. RAMIPRIL [Suspect]
     Active Substance: RAMIPRIL
     Indication: Hypertension
     Dosage: 2.5 MILLIGRAM DAILY; 2.5MG/D LONG TERM
     Route: 048
     Dates: end: 20201129
  2. TEGELINE [Suspect]
     Active Substance: HUMAN IMMUNOGLOBULIN G
     Indication: Polyneuropathy
     Dosage: TOTAL DOSE TEGELINE 35G OVER 5 DAYS,TEGELINE 10 G/200 ML, POWDER AND SOLVENT FOR SOLUTION FOR INFUSI
     Route: 042
     Dates: start: 20201125, end: 20201129
  3. TEGELINE [Suspect]
     Active Substance: HUMAN IMMUNOGLOBULIN G
     Dosage: TEGELINE 5 G/100 ML, POWDER AND SOLVENT FOR SOLUTION FOR INFUSION,TOTAL DOSE TEGELINE 35G OVER 5 DAY
     Route: 042
     Dates: start: 20201125, end: 20201129

REACTIONS (1)
  - Acute kidney injury [Recovering/Resolving]

NARRATIVE: CASE EVENT DATE: 20201128
